FAERS Safety Report 6824414-5 (Version None)
Quarter: 2010Q3

REPORT INFORMATION
  Report Type: 
  Country: None (occurrence: None)
  Receive Date: 20100708
  Receipt Date: 20061021
  Transmission Date: 20110219
  Serious: No
  Sender: FDA-Public Use
  Company Number: US-PFIZER INC-2006129520

PATIENT
  Sex: Male
  Weight: 102.06 kg

DRUGS (6)
  1. CHANTIX [Suspect]
     Indication: SMOKING CESSATION THERAPY
     Route: 048
     Dates: start: 20060901
  2. LOTREL [Concomitant]
     Indication: HYPERTENSION
  3. TOPROL-XL [Concomitant]
  4. TRICOR [Concomitant]
  5. PLAVIX [Concomitant]
  6. VYTORIN [Concomitant]

REACTIONS (2)
  - INSOMNIA [None]
  - SOMNOLENCE [None]
